FAERS Safety Report 15876665 (Version 1)
Quarter: 2019Q1

REPORT INFORMATION
  Report Type: Spontaneous
  Country: CA (occurrence: CA)
  Receive Date: 20190127
  Receipt Date: 20190127
  Transmission Date: 20190417
  Serious: Yes (Other)
  Sender: FDA-Public Use
  Company Number: CA-TEVA-2019-CA-1004866

PATIENT
  Age: 41 Year
  Sex: Female

DRUGS (2)
  1. PREDNISONE. [Suspect]
     Active Substance: PREDNISONE
     Indication: DERMATOMYOSITIS
     Route: 065
  2. TACROLIMUS. [Suspect]
     Active Substance: TACROLIMUS
     Indication: DERMATOMYOSITIS
     Route: 065

REACTIONS (10)
  - Influenza [Recovered/Resolved]
  - Product use in unapproved indication [Recovered/Resolved]
  - Respiratory failure [Recovered/Resolved]
  - Thrombotic microangiopathy [Recovered/Resolved]
  - Acute kidney injury [Recovered/Resolved]
  - Off label use [Recovered/Resolved]
  - Hypertension [Recovered/Resolved]
  - Pulmonary alveolar haemorrhage [Recovered/Resolved]
  - Anaemia [Recovered/Resolved]
  - Immunosuppressant drug level decreased [Recovered/Resolved]
